FAERS Safety Report 16894496 (Version 1)
Quarter: 2019Q4

REPORT INFORMATION
  Report Type: Spontaneous
  Country: GB (occurrence: GB)
  Receive Date: 20191008
  Receipt Date: 20191008
  Transmission Date: 20200122
  Serious: Yes (Disabling)
  Sender: FDA-Public Use
  Company Number: GB-MYLANLABS-2019M1092628

PATIENT
  Age: 54 Year
  Sex: Female
  Weight: 71 kg

DRUGS (5)
  1. NORTRIPTYLINE [Concomitant]
     Active Substance: NORTRIPTYLINE
     Dosage: 3 DOSAGE FORM, QD
     Dates: start: 20181019, end: 20190312
  2. BISOPROLOL [Concomitant]
     Active Substance: BISOPROLOL
     Dosage: 1 DOSAGE FORM, QD
     Dates: start: 20190121
  3. TOPIRAMATE. [Suspect]
     Active Substance: TOPIRAMATE
     Indication: VERTIGO
     Dosage: 50 MILLIGRAM
     Dates: start: 20190412
  4. ZONISAMIDE. [Concomitant]
     Active Substance: ZONISAMIDE
     Dosage: FOR A WEEK, THEN INCREASING
     Dates: start: 20190510
  5. FOLIC ACID. [Concomitant]
     Active Substance: FOLIC ACID
     Dosage: 1 DOSAGE FORM, QD
     Dates: start: 20181217

REACTIONS (2)
  - Nausea [Recovered/Resolved]
  - Gastrooesophageal reflux disease [Unknown]
